FAERS Safety Report 6031514-9 (Version None)
Quarter: 2009Q1

REPORT INFORMATION
  Report Type: 
  Country: None (occurrence: None)
  Receive Date: 20090108
  Receipt Date: 20090106
  Transmission Date: 20090719
  Serious: Yes (Other)
  Sender: FDA-Public Use
  Company Number: A0762144A

PATIENT
  Age: 53 Year
  Sex: Female

DRUGS (2)
  1. ALLI [Suspect]
     Indication: WEIGHT CONTROL
     Route: 048
     Dates: end: 20081228
  2. TOPAMAX [Concomitant]
     Indication: MIGRAINE

REACTIONS (5)
  - BACK PAIN [None]
  - BLOOD URINE PRESENT [None]
  - CYSTITIS [None]
  - KIDNEY INFECTION [None]
  - NEPHROLITHIASIS [None]
